FAERS Safety Report 5870973-9 (Version None)
Quarter: 2008Q3

REPORT INFORMATION
  Report Type: 
  Country: None (occurrence: None)
  Receive Date: 20080904
  Receipt Date: 20080901
  Transmission Date: 20090109
  Serious: Yes (Other)
  Sender: FDA-Public Use
  Company Number: UG-BOEHRINGER INGELHEIM GMBH, GERMANY-2008-DE-01248GD

PATIENT

DRUGS (2)
  1. NEVIRAPINE [Suspect]
     Indication: HUMAN IMMUNODEFICIENCY VIRUS TRANSMISSION
  2. NEVIRAPINE [Suspect]
     Indication: PROPHYLAXIS
     Route: 064

REACTIONS (3)
  - DRUG RESISTANCE [None]
  - HIV INFECTION [None]
  - VIRAL MUTATION IDENTIFIED [None]
